FAERS Safety Report 6724744-1 (Version None)
Quarter: 2010Q2

REPORT INFORMATION
  Report Type: 
  Country: None (occurrence: None)
  Receive Date: 20100511
  Receipt Date: 20100427
  Transmission Date: 20101027
  Serious: Yes (Hospitalization, Other)
  Sender: FDA-Public Use
  Company Number: 7002951

PATIENT
  Age: 34 Year
  Sex: Female
  Weight: 97 kg

DRUGS (9)
  1. REBIF [Suspect]
     Dosage: 44 MCG, 3 IN 1 WK, SUBCUTANEOUS
     Route: 058
     Dates: start: 20090209
  2. PROGESTERONE INTRAUTERINE DEVICE         (INTRAUTERINE CONTRACEPTIVE D [Concomitant]
  3. CYMBALTA [Concomitant]
  4. ATIVAN [Concomitant]
  5. LUNESTA [Concomitant]
  6. UNSPECIFIED PURPLE PILL (ALL OTHER THERAPEUTIC PRODUCTS) [Concomitant]
  7. RANITIDINE [Concomitant]
  8. PROVIGIL [Concomitant]
  9. NEURONTIN [Concomitant]

REACTIONS (7)
  - DEPRESSION [None]
  - DYSGEUSIA [None]
  - INJECTION SITE INDURATION [None]
  - INJECTION SITE PAIN [None]
  - SUICIDAL IDEATION [None]
  - THYROID CYST [None]
  - WEIGHT INCREASED [None]
